FAERS Safety Report 7624768-6 (Version None)
Quarter: 2011Q3

REPORT INFORMATION
  Report Type: 
  Country: None (occurrence: None)
  Receive Date: 20110720
  Receipt Date: 20110518
  Transmission Date: 20111222
  Serious: No
  Sender: FDA-Public Use
  Company Number: US-BAYER-2011-043503

PATIENT
  Sex: Male

DRUGS (1)
  1. MAGNEVIST [Suspect]
     Indication: NUCLEAR MAGNETIC RESONANCE IMAGING
     Dosage: 18 ML, ONCE
     Dates: start: 20110517, end: 20110517

REACTIONS (4)
  - PRURITUS [None]
  - URTICARIA [None]
  - FLUSHING [None]
  - BLISTER [None]
